FAERS Safety Report 6214601-1 (Version None)
Quarter: 2009Q2

REPORT INFORMATION
  Report Type: 
  Country: None (occurrence: None)
  Receive Date: 20090604
  Receipt Date: 20090522
  Transmission Date: 20091009
  Serious: Yes (Other)
  Sender: FDA-Public Use
  Company Number: ZA-PFIZER INC-2009219976

PATIENT
  Age: 35 Year

DRUGS (2)
  1. GEODON [Suspect]
     Indication: PERSONALITY DISORDER
     Dosage: 60 MG, 1X/DAY
     Route: 048
     Dates: start: 20090501
  2. EPILIM [Concomitant]

REACTIONS (1)
  - HALLUCINATION [None]
